FAERS Safety Report 11670800 (Version 1)
Quarter: 2015Q4

REPORT INFORMATION
  Report Type: Spontaneous
  Country: US (occurrence: US)
  Receive Date: 20151027
  Receipt Date: 20151027
  Transmission Date: 20160304
  Serious: No
  Sender: FDA-Public Use
  Company Number: US-ELI_LILLY_AND_COMPANY-US201002006638

PATIENT
  Age: 50 Year
  Sex: Female

DRUGS (2)
  1. FORTEO [Suspect]
     Active Substance: TERIPARATIDE
     Indication: OSTEOPOROSIS
     Dosage: 20 UG, DAILY (1/D)
     Dates: start: 20100222, end: 20100224
  2. FORTEO [Suspect]
     Active Substance: TERIPARATIDE
     Dosage: 20 UG, DAILY (1/D)
     Dates: start: 20100226

REACTIONS (9)
  - Dysphonia [Not Recovered/Not Resolved]
  - Injection site haemorrhage [Recovered/Resolved]
  - Abdominal pain [Unknown]
  - Nasal discomfort [Unknown]
  - Throat irritation [Unknown]
  - Chest pain [Unknown]
  - Productive cough [Recovered/Resolved]
  - Dyspepsia [Not Recovered/Not Resolved]
  - Injection site haemorrhage [Unknown]

NARRATIVE: CASE EVENT DATE: 2010
